FAERS Safety Report 4289796-X (Version None)
Quarter: 2004Q1

REPORT INFORMATION
  Report Type: 
  Country: None (occurrence: None)
  Receive Date: 20040210
  Receipt Date: 20040128
  Transmission Date: 20041129
  Serious: Yes (Other)
  Sender: FDA-Public Use
  Company Number: CH-GLAXOSMITHKLINE-B0321512A

PATIENT
  Age: 6 Year
  Sex: Male

DRUGS (3)
  1. AUGMENTIN [Suspect]
     Indication: PROPHYLAXIS
     Dosage: 15ML PER DAY
     Route: 048
     Dates: start: 20031217, end: 20031217
  2. NOVALGIN [Suspect]
     Dosage: 450MG PER DAY
     Route: 048
     Dates: start: 20031217, end: 20031217
  3. MEFENACID [Suspect]
     Dosage: 500MG PER DAY
     Route: 065
     Dates: start: 20031217, end: 20031217

REACTIONS (3)
  - ANAPHYLACTOID REACTION [None]
  - OEDEMA MOUTH [None]
  - PRURITUS [None]
